FAERS Safety Report 7232913-X (Version None)
Quarter: 2011Q1

REPORT INFORMATION
  Report Type: 
  Country: None (occurrence: None)
  Receive Date: 20110119
  Receipt Date: 20110110
  Transmission Date: 20110831
  Serious: Yes (Hospitalization)
  Sender: FDA-Public Use
  Company Number: PHHY2010US44011

PATIENT
  Sex: Male
  Weight: 93.424 kg

DRUGS (5)
  1. ADVAIR [Concomitant]
  2. EXJADE [Suspect]
     Dosage: 3500 MG, DAILY (2000 MG IN MORNING AND 1500 MG IN EVENING
     Route: 048
     Dates: start: 20100601, end: 20100627
  3. CIPROFLOXACIN [Concomitant]
  4. METRONIDAZOLE [Concomitant]
  5. NORVASC [Concomitant]

REACTIONS (4)
  - ASTHENIA [None]
  - LIVER FUNCTION TEST ABNORMAL [None]
  - DIARRHOEA [None]
  - PYREXIA [None]
